FAERS Safety Report 18786544 (Version 1)
Quarter: 2021Q1

REPORT INFORMATION
  Report Type: Spontaneous
  Country: US (occurrence: US)
  Receive Date: 20210125
  Receipt Date: 20210125
  Transmission Date: 20210419
  Serious: Yes (Life-Threatening, Hospitalization)
  Sender: FDA-Public Use
  Company Number: None

PATIENT
  Age: 66 Year
  Sex: Male
  Weight: 83.25 kg

DRUGS (5)
  1. METOPROLOL ER SUCCINATE [Suspect]
     Active Substance: METOPROLOL SUCCINATE
     Indication: HYPERTENSION
     Dosage: ?          QUANTITY:1 TABLET(S);?
     Route: 048
     Dates: start: 20200910, end: 20201210
  2. METOPROLOL ER SUCCINATE [Suspect]
     Active Substance: METOPROLOL SUCCINATE
     Indication: PALPITATIONS
     Dosage: ?          QUANTITY:1 TABLET(S);?
     Route: 048
     Dates: start: 20200910, end: 20201210
  3. DILTIAZEM CD [Concomitant]
     Active Substance: DILTIAZEM
  4. METOPROLOL ER SUCCINATE [Suspect]
     Active Substance: METOPROLOL SUCCINATE
     Indication: ATRIAL FIBRILLATION
     Dosage: ?          QUANTITY:1 TABLET(S);?
     Route: 048
     Dates: start: 20200910, end: 20201210
  5. ELIQUIS [Concomitant]
     Active Substance: APIXABAN

REACTIONS (3)
  - Therapeutic product effect decreased [None]
  - Product formulation issue [None]
  - Product substitution issue [None]

NARRATIVE: CASE EVENT DATE: 20201209
